FAERS Safety Report 13503983 (Version 7)
Quarter: 2017Q3

REPORT INFORMATION
  Report Type: Report from Study
  Country: BR (occurrence: BR)
  Receive Date: 20170502
  Receipt Date: 20170728
  Transmission Date: 20171127
  Serious: Yes (Death, Hospitalization, Other)
  Sender: FDA-Public Use
  Company Number: BR-AMGEN-BRANI2017063938

PATIENT
  Age: 15 Year
  Sex: Male
  Weight: 36 kg

DRUGS (1)
  1. BLINATUMOMAB [Suspect]
     Active Substance: BLINATUMOMAB
     Indication: PRECURSOR B-LYMPHOBLASTIC LYMPHOMA
     Dosage: 5 MUG/M2, QD
     Route: 065
     Dates: start: 20170424

REACTIONS (27)
  - Pyrexia [Fatal]
  - Metabolic acidosis [Recovered/Resolved]
  - Pneumonia [Recovered/Resolved]
  - Dyspnoea [Recovered/Resolved]
  - Thrombocytopenia [Not Recovered/Not Resolved]
  - Urinary tract infection bacterial [Recovering/Resolving]
  - Acute respiratory failure [Recovered/Resolved]
  - Weight increased [Not Recovered/Not Resolved]
  - Leukopenia [Not Recovered/Not Resolved]
  - Abdominal pain [Recovered/Resolved]
  - Coagulopathy [Not Recovered/Not Resolved]
  - Hypernatraemia [Recovered/Resolved]
  - Hypocalcaemia [Recovered/Resolved]
  - Chest pain [Recovered/Resolved]
  - Neutropenia [Not Recovered/Not Resolved]
  - Capillary leak syndrome [Recovered/Resolved]
  - Septic shock [Fatal]
  - Decreased appetite [Not Recovered/Not Resolved]
  - Hypoxia [Not Recovered/Not Resolved]
  - Pancytopenia [Fatal]
  - Transaminases [Recovered/Resolved]
  - Blood lactic acid increased [Recovering/Resolving]
  - Hypertension [Recovered/Resolved]
  - Hypotension [Not Recovered/Not Resolved]
  - Disseminated intravascular coagulation [Fatal]
  - Nausea [Recovered/Resolved]
  - Headache [Recovered/Resolved]

NARRATIVE: CASE EVENT DATE: 20170424
